FAERS Safety Report 7654106-4 (Version None)
Quarter: 2011Q3

REPORT INFORMATION
  Report Type: 
  Country: None (occurrence: None)
  Receive Date: 20110803
  Receipt Date: 20110726
  Transmission Date: 20111222
  Serious: Yes (Other)
  Sender: FDA-Public Use
  Company Number: PHHY2011CA67372

PATIENT
  Sex: Female

DRUGS (1)
  1. ZOLEDRONOC ACID [Suspect]
     Indication: OSTEOPOROSIS
     Dosage: UNK UKN, UNK
     Route: 042
     Dates: start: 20110714

REACTIONS (10)
  - BONE PAIN [None]
  - PRURITUS [None]
  - EAR CONGESTION [None]
  - DIZZINESS [None]
  - ERYTHEMA [None]
  - HOT FLUSH [None]
  - BLISTER [None]
  - DIVERTICULITIS [None]
  - INFLUENZA LIKE ILLNESS [None]
  - HEADACHE [None]
